FAERS Safety Report 19020707 (Version 1)
Quarter: 2021Q1

REPORT INFORMATION
  Report Type: Spontaneous
  Country: QA (occurrence: QA)
  Receive Date: 20210317
  Receipt Date: 20210317
  Transmission Date: 20210420
  Serious: Yes (Hospitalization)
  Sender: FDA-Public Use
  Company Number: QA-STRIDES ARCOLAB LIMITED-2021SP003198

PATIENT
  Age: 47 Year
  Sex: Female

DRUGS (2)
  1. LEVOBUPIVACAINE [Concomitant]
     Active Substance: LEVOBUPIVACAINE
     Indication: OSTEOARTHRITIS
     Dosage: UNK
     Route: 065
  2. TRIAMCINOLONE ACETONIDE. [Suspect]
     Active Substance: TRIAMCINOLONE ACETONIDE
     Indication: OSTEOARTHRITIS
     Dosage: 40 MILLIGRAM
     Route: 014

REACTIONS (1)
  - Osteonecrosis [Unknown]
